FAERS Safety Report 25311413 (Version 2)
Quarter: 2025Q2

REPORT INFORMATION
  Report Type: Report from Study
  Country: CA (occurrence: CA)
  Receive Date: 20250514
  Receipt Date: 20250521
  Transmission Date: 20250716
  Serious: Yes (Other)
  Sender: TAKEDA
  Company Number: CA-TAKEDA-2025TUS010730

PATIENT
  Sex: Male

DRUGS (13)
  1. VEDOLIZUMAB [Suspect]
     Active Substance: VEDOLIZUMAB
     Indication: Colitis ulcerative
  2. VEDOLIZUMAB [Suspect]
     Active Substance: VEDOLIZUMAB
  3. VEDOLIZUMAB [Suspect]
     Active Substance: VEDOLIZUMAB
     Dosage: 300 MILLIGRAM, Q4WEEKS
     Dates: start: 20250514
  4. TOFACITINIB [Concomitant]
     Active Substance: TOFACITINIB
  5. PREDNISONE [Concomitant]
     Active Substance: PREDNISONE
  6. Enofer [Concomitant]
  7. SOLU-MEDROL [Concomitant]
     Active Substance: METHYLPREDNISOLONE SODIUM SUCCINATE
  8. VANCOMYCIN [Concomitant]
     Active Substance: VANCOMYCIN
  9. VANCOMYCIN [Concomitant]
     Active Substance: VANCOMYCIN
  10. XELJANZ [Concomitant]
     Active Substance: TOFACITINIB CITRATE
  11. FLAGYL [Concomitant]
     Active Substance: METRONIDAZOLE\METRONIDAZOLE HYDROCHLORIDE
  12. CIPROFLOXACIN [Concomitant]
     Active Substance: CIPROFLOXACIN
  13. CORTEF [Concomitant]
     Active Substance: HYDROCORTISONE

REACTIONS (6)
  - Colitis ulcerative [Not Recovered/Not Resolved]
  - Hyperthermia [Recovered/Resolved]
  - Off label use [Unknown]
  - Pyrexia [Recovered/Resolved]
  - Dysphagia [Recovered/Resolved]
  - Oropharyngeal pain [Recovered/Resolved]

NARRATIVE: CASE EVENT DATE: 20240101
